FAERS Safety Report 5284897-1 (Version None)
Quarter: 2007Q2

REPORT INFORMATION
  Report Type: 
  Country: None (occurrence: None)
  Receive Date: 20070403
  Receipt Date: 20070129
  Transmission Date: 20071010
  Serious: Yes (Hospitalization)
  Sender: FDA-Public Use
  Company Number: US-AVENTIS-200614282US

PATIENT
  Sex: Male

DRUGS (14)
  1. LANTUS [Suspect]
     Dates: start: 20060401, end: 20060601
  2. OPTICLIK (INSULIN INJECTION PEN) [Suspect]
     Dosage: DOSE: UNK
     Dates: start: 20060401, end: 20060601
  3. ZOCOR [Concomitant]
     Dosage: DOSE: UNKNOWN
  4. ACTOS [Concomitant]
     Dosage: DOSE: UNKNOWN
  5. AMARYL [Concomitant]
     Dosage: DOSE: UNKNOWN
  6. LISINOPRIL [Concomitant]
     Dosage: DOSE: UNKNOWN
  7. COREG [Concomitant]
     Dosage: DOSE: UNK
  8. CA+ [Concomitant]
     Dosage: DOSE: UNKNOWN
  9. PLAVIX [Concomitant]
     Dosage: DOSE: UNK
  10. ASPIRIN [Concomitant]
     Dosage: DOSE: UNK
  11. PROTONIX [Concomitant]
     Dosage: DOSE: UNK
  12. PEPCID                             /00706001/ [Concomitant]
     Dosage: DOSE: UNKNOWN
  13. GLYBURIDE [Concomitant]
     Dosage: DOSE: UNKNOWN
  14. ATENOLOL [Concomitant]

REACTIONS (5)
  - CATHETERISATION CARDIAC [None]
  - CORONARY ARTERY BYPASS [None]
  - HYPERGLYCAEMIA [None]
  - INJECTION SITE EXTRAVASATION [None]
  - INTENSIVE CARE [None]
